FAERS Safety Report 21774157 (Version 1)
Quarter: 2022Q4

REPORT INFORMATION
  Report Type: Spontaneous
  Country: None (occurrence: ES)
  Receive Date: 20221223
  Receipt Date: 20221223
  Transmission Date: 20230113
  Serious: Yes (Hospitalization, Other)
  Sender: FDA-Public Use
  Company Number: ES-Canton Laboratories, LLC-2136153

PATIENT
  Age: 49 Year
  Sex: Female

DRUGS (1)
  1. NAPROSYN [Suspect]
     Active Substance: NAPROXEN
     Indication: Suicide attempt

REACTIONS (7)
  - Poisoning deliberate [Recovered/Resolved]
  - Peripheral ischaemia [Recovered/Resolved]
  - Renal failure [Recovered/Resolved]
  - Compartment syndrome [Recovered/Resolved]
  - Rhabdomyolysis [Recovered/Resolved]
  - Leg amputation [Unknown]
  - Metabolic acidosis [Recovered/Resolved]
